FAERS Safety Report 7736640-1 (Version None)
Quarter: 2011Q3

REPORT INFORMATION
  Report Type: 
  Country: None (occurrence: None)
  Receive Date: 20110902
  Receipt Date: 20110822
  Transmission Date: 20111222
  Serious: Yes (Hospitalization, Other)
  Sender: FDA-Public Use
  Company Number: 2011MA011408

PATIENT
  Age: 91 Year
  Sex: Female

DRUGS (4)
  1. VERAPAMIL HCL [Suspect]
     Indication: ANGINA PECTORIS
  2. FUROSEMIDE [Concomitant]
  3. ESOMEPRAZOLE SODIUM [Concomitant]
  4. LORAZEPAM [Concomitant]

REACTIONS (5)
  - ARRHYTHMIA [None]
  - LINEAR IGA DISEASE [None]
  - ATRIAL FIBRILLATION [None]
  - TOXIC EPIDERMAL NECROLYSIS [None]
  - PRURIGO [None]
